FAERS Safety Report 6730802-8 (Version None)
Quarter: 2010Q2

REPORT INFORMATION
  Report Type: 
  Country: None (occurrence: None)
  Receive Date: 20100518
  Receipt Date: 20100511
  Transmission Date: 20101027
  Serious: Yes (Other)
  Sender: FDA-Public Use
  Company Number: US-PFIZER INC-2010059648

PATIENT
  Sex: Female
  Weight: 58.95 kg

DRUGS (1)
  1. CHANTIX [Suspect]
     Indication: SMOKING CESSATION THERAPY
     Dosage: 0.5 MG, 1X/DAY
     Route: 048
     Dates: start: 20100107, end: 20100101

REACTIONS (7)
  - ERYTHEMA [None]
  - EYE SWELLING [None]
  - MALAISE [None]
  - OROPHARYNGEAL BLISTERING [None]
  - PRURITUS [None]
  - RASH [None]
  - SWELLING FACE [None]
